FAERS Safety Report 4463387-X (Version None)
Quarter: 2004Q3

REPORT INFORMATION
  Report Type: 
  Country: None (occurrence: None)
  Receive Date: 20040930
  Receipt Date: 20040602
  Transmission Date: 20050211
  Serious: Yes (Hospitalization, Disabling, Other)
  Sender: FDA-Public Use
  Company Number: GB-AMGEN-US080508

PATIENT
  Sex: Female

DRUGS (7)
  1. ENBREL [Suspect]
     Indication: JUVENILE ARTHRITIS
     Route: 058
     Dates: start: 20000301, end: 20020201
  2. ENBREL [Suspect]
     Route: 058
     Dates: start: 20020701, end: 20030901
  3. PREDNISOLONE [Suspect]
  4. METHOTREXATE [Suspect]
  5. PIROXICAM [Concomitant]
  6. RANITIDINE HYDROCHLORIDE [Concomitant]
  7. LORATADINE [Concomitant]

REACTIONS (3)
  - CONDITION AGGRAVATED [None]
  - JUVENILE ARTHRITIS [None]
  - PSYCHOTIC DISORDER [None]
